FAERS Safety Report 16398124 (Version 1)
Quarter: 2019Q2

REPORT INFORMATION
  Report Type: Spontaneous
  Country: US (occurrence: US)
  Receive Date: 20190430
  Receipt Date: 20190430
  Transmission Date: 20190711
  Serious: Yes (Hospitalization)
  Sender: FDA-Public Use
  Company Number: None

PATIENT
  Age: 59 Year
  Sex: Male
  Weight: 81.7 kg

DRUGS (1)
  1. TEMOZOLOMIDE. [Suspect]
     Active Substance: TEMOZOLOMIDE
     Dates: end: 20190310

REACTIONS (10)
  - Fall [None]
  - Head injury [None]
  - Anxiety [None]
  - Aphasia [None]
  - Mental status changes [None]
  - Asthenia [None]
  - Agitation [None]
  - Hypophagia [None]
  - Cognitive disorder [None]
  - Memory impairment [None]

NARRATIVE: CASE EVENT DATE: 20190412
